FAERS Safety Report 5693752-4 (Version None)
Quarter: 2008Q2

REPORT INFORMATION
  Report Type: 
  Country: None (occurrence: None)
  Receive Date: 20080403
  Receipt Date: 20080327
  Transmission Date: 20081010
  Serious: Yes (Hospitalization)
  Sender: FDA-Public Use
  Company Number: US-WYE-H03317208

PATIENT
  Sex: Male
  Weight: 36.32 kg

DRUGS (10)
  1. ETODOLAC [Suspect]
     Dates: start: 20070301
  2. PROZAC [Concomitant]
     Dates: start: 20060310
  3. PRINIVIL [Concomitant]
     Dates: start: 20051014
  4. SUTENT [Concomitant]
     Indication: METASTATIC RENAL CELL CARCINOMA
     Dosage: 37.5 MG DAILY FOR 28 DAYS CYCLE 1 THROUGH CYCLE 13
     Route: 048
     Dates: start: 20051118, end: 20070315
  5. SUTENT [Concomitant]
     Dosage: 37.5 MG DAILY FOR 28 DAYS CYCLE 1 THROUGH CYCLE 13
     Dates: start: 20070412
  6. PRILOSEC [Concomitant]
     Dates: start: 20051014
  7. VITAMIN CAP [Concomitant]
     Dosage: 1 DOSE DAILY
     Dates: start: 20070301
  8. FELODIPINE [Concomitant]
     Dates: start: 20061120
  9. SYNTHROID [Concomitant]
     Dates: start: 20061228
  10. DYAZIDE [Concomitant]
     Dosage: 37.5/25 ONCE DAILY
     Dates: start: 20070301

REACTIONS (1)
  - RENAL FAILURE ACUTE [None]
